FAERS Safety Report 10658157 (Version 1)
Quarter: 2014Q4

REPORT INFORMATION
  Report Type: Spontaneous
  Country: US (occurrence: None)
  Receive Date: 20141216
  Receipt Date: 20141216
  Transmission Date: 20150529
  Serious: Yes (Other)
  Sender: FDA-Public Use
  Company Number: None

PATIENT
  Age: 16 Year
  Sex: Male
  Weight: 52.4 kg

DRUGS (4)
  1. INTUNIV [Suspect]
     Active Substance: GUANFACINE HYDROCHLORIDE
     Indication: SEIZURE
     Dosage: 1 TAB QAM ORALLY
     Route: 048
     Dates: start: 2011
  2. INTUNIV [Suspect]
     Active Substance: GUANFACINE HYDROCHLORIDE
     Indication: AUTISM
     Dosage: 1 TAB  Q NOON  ORALLY
     Route: 048
     Dates: start: 2011
  3. INTUNIV [Suspect]
     Active Substance: GUANFACINE HYDROCHLORIDE
     Indication: SEIZURE
     Dosage: 1 TAB  Q NOON  ORALLY
     Route: 048
     Dates: start: 2011
  4. INTUNIV [Suspect]
     Active Substance: GUANFACINE HYDROCHLORIDE
     Indication: AUTISM
     Dosage: 1 TAB QAM ORALLY
     Route: 048
     Dates: start: 2011

REACTIONS (1)
  - Product substitution issue [None]

NARRATIVE: CASE EVENT DATE: 20141215
